FAERS Safety Report 9412070 (Version 1)
Quarter: 2013Q3

REPORT INFORMATION
  Report Type: Spontaneous
  Country: US (occurrence: US)
  Receive Date: 20130722
  Receipt Date: 20130722
  Transmission Date: 20140515
  Serious: Yes (Hospitalization)
  Sender: FDA-Public Use
  Company Number: US-BAYER-2013-088227

PATIENT
  Age: 23 Year
  Sex: Female

DRUGS (4)
  1. YASMIN [Suspect]
  2. METFORMIN [Concomitant]
     Indication: OLIGOMENORRHOEA
  3. FINASTERIDE [Concomitant]
  4. ADVIL [Concomitant]

REACTIONS (2)
  - Deep vein thrombosis [None]
  - Pulmonary embolism [None]
